FAERS Safety Report 6007691-2 (Version None)
Quarter: 2008Q4

REPORT INFORMATION
  Report Type: 
  Country: None (occurrence: None)
  Receive Date: 20081217
  Receipt Date: 20080429
  Transmission Date: 20090506
  Serious: No
  Sender: FDA-Public Use
  Company Number: US-ASTRAZENECA-2008UW06942

PATIENT
  Age: 27016 Day
  Sex: Female
  Weight: 55.8 kg

DRUGS (3)
  1. CRESTOR [Suspect]
     Indication: BLOOD CHOLESTEROL INCREASED
     Route: 048
     Dates: start: 20071001
  2. CRESTOR [Suspect]
     Dosage: INCREASED
     Route: 048
  3. ATENOLOL [Concomitant]

REACTIONS (1)
  - STOMATITIS [None]
